FAERS Safety Report 18948037 (Version 1)
Quarter: 2021Q1

REPORT INFORMATION
  Report Type: Spontaneous
  Country: US (occurrence: US)
  Receive Date: 20210226
  Receipt Date: 20210226
  Transmission Date: 20210420
  Serious: No
  Sender: FDA-Public Use
  Company Number: US-NEPHRON STERILE COMPOUNDING CENTER-2107383

PATIENT
  Age: 38 Year
  Sex: Male
  Weight: 122 kg

DRUGS (8)
  1. SUCCINYLCHOLINE CHLORIDE. [Suspect]
     Active Substance: SUCCINYLCHOLINE CHLORIDE
     Route: 040
     Dates: start: 20210215, end: 20210215
  2. LIDOCAINE. [Concomitant]
     Active Substance: LIDOCAINE
     Route: 065
  3. ROCURONIUM BROMIDE. [Concomitant]
     Active Substance: ROCURONIUM BROMIDE
     Route: 040
  4. FENTANYL. [Concomitant]
     Active Substance: FENTANYL
     Route: 040
  5. PROPOFOL. [Concomitant]
     Active Substance: PROPOFOL
     Route: 040
  6. ZOFRAN [Concomitant]
     Active Substance: ONDANSETRON HYDROCHLORIDE
     Route: 065
  7. SUGAMMADEX 400 MG [Concomitant]
     Route: 065
  8. LACTATED RINGERS SOLUTION [Concomitant]
     Active Substance: CALCIUM CHLORIDE\POTASSIUM CHLORIDE\SODIUM CHLORIDE\SODIUM LACTATE
     Route: 041

REACTIONS (1)
  - Trismus [Recovered/Resolved]
